FAERS Safety Report 19508795 (Version 1)
Quarter: 2021Q3

REPORT INFORMATION
  Report Type: Spontaneous
  Country: FR (occurrence: FR)
  Receive Date: 20210708
  Receipt Date: 20210708
  Transmission Date: 20211014
  Serious: Yes (Hospitalization)
  Sender: FDA-Public Use
  Company Number: FR-ASTRAZENECA-2021A578720

PATIENT
  Age: 42 Year
  Sex: Male

DRUGS (3)
  1. ESCITALOPRAM BIOGARAN [Suspect]
     Active Substance: ESCITALOPRAM OXALATE
     Route: 048
  2. 3?MEO?PCP [Suspect]
     Active Substance: 3-METHOXYPHENCYCLIDINE
     Route: 065
  3. QUETIAPINE. [Suspect]
     Active Substance: QUETIAPINE
     Dosage: UNKNOWN
     Route: 048

REACTIONS (2)
  - Bradypnoea [Recovered/Resolved]
  - Coma [Recovered/Resolved]
